FAERS Safety Report 5519483-9 (Version None)
Quarter: 2007Q4

REPORT INFORMATION
  Report Type: 
  Country: None (occurrence: None)
  Receive Date: 20071114
  Receipt Date: 20071031
  Transmission Date: 20080405
  Serious: Yes (Other)
  Sender: FDA-Public Use
  Company Number: 100#03#2007-04584

PATIENT
  Age: 32 Year
  Sex: Female

DRUGS (5)
  1. SERTRALINE [Suspect]
     Indication: DEPRESSION
     Dosage: 50 MG ORAL
     Route: 048
     Dates: start: 20070821, end: 20070912
  2. FLUOXETINE [Suspect]
     Indication: DEPRESSION
     Dosage: 20 MG ORAL
     Route: 048
     Dates: start: 20070730, end: 20070815
  3. BECLOMETHASONE (BECLOMETASONE DIPROPIONATE) (BECLOMETHASONE) [Concomitant]
  4. ACETAMINOPHEN W/ CODEINE [Concomitant]
  5. SALBUTAMOL (SALBUTAMOL) (SALBUTAMOL) [Concomitant]

REACTIONS (3)
  - RASH ERYTHEMATOUS [None]
  - RASH MACULO-PAPULAR [None]
  - RASH PRURITIC [None]
